FAERS Safety Report 8213438-1 (Version None)
Quarter: 2012Q1

REPORT INFORMATION
  Report Type: 
  Country: None (occurrence: None)
  Receive Date: 20120315
  Receipt Date: 20120229
  Transmission Date: 20120608
  Serious: Yes (Hospitalization, Disabling)
  Sender: FDA-Public Use
  Company Number: PHHO2010FR03568

PATIENT
  Sex: Male

DRUGS (7)
  1. TACROLIMUS [Suspect]
     Indication: LIVER TRANSPLANT
     Dosage: 1 + 1 DAILY
     Route: 048
     Dates: start: 20090305
  2. BACTRIM [Concomitant]
  3. EVEROLIMUS [Suspect]
     Indication: LIVER TRANSPLANT
     Dosage: 0.75 + 0.5 DAILY
     Route: 048
     Dates: start: 20090307, end: 20100707
  4. AMARYL [Concomitant]
  5. VIREAD [Concomitant]
  6. GLUCOPHAGE [Concomitant]
  7. NEXIUM [Concomitant]

REACTIONS (3)
  - LUNG DISORDER [None]
  - COUGH [None]
  - OBSTRUCTIVE AIRWAYS DISORDER [None]
